FAERS Safety Report 4717584-6 (Version None)
Quarter: 2005Q3

REPORT INFORMATION
  Report Type: 
  Country: None (occurrence: None)
  Receive Date: 20050712
  Receipt Date: 20050606
  Transmission Date: 20060218
  Serious: No
  Sender: FDA-Public Use
  Company Number: 2005S1000116

PATIENT
  Sex: Male

DRUGS (2)
  1. CUBICIN [Suspect]
     Indication: ENTEROCOCCAL BACTERAEMIA
     Dosage: IV
     Route: 042
     Dates: start: 20050501
  2. CUBICIN [Suspect]
     Indication: NEUTROPENIA
     Dosage: IV
     Route: 042
     Dates: start: 20050501

REACTIONS (1)
  - LIVER FUNCTION TEST ABNORMAL [None]
